FAERS Safety Report 6825555-9 (Version None)
Quarter: 2010Q3

REPORT INFORMATION
  Report Type: 
  Country: None (occurrence: None)
  Receive Date: 20100708
  Receipt Date: 20071213
  Transmission Date: 20110219
  Serious: Yes (Other)
  Sender: FDA-Public Use
  Company Number: US-PFIZER INC-2006126334

PATIENT
  Sex: Female
  Weight: 59 kg

DRUGS (2)
  1. CHANTIX [Suspect]
     Indication: EX-TOBACCO USER
     Route: 048
     Dates: start: 20060913, end: 20060915
  2. EVOXAC [Concomitant]

REACTIONS (3)
  - ARRHYTHMIA [None]
  - BLOOD PRESSURE INCREASED [None]
  - HEART RATE INCREASED [None]
